FAERS Safety Report 5878731-6 (Version None)
Quarter: 2008Q3

REPORT INFORMATION
  Report Type: 
  Country: None (occurrence: None)
  Receive Date: 20080912
  Receipt Date: 20080902
  Transmission Date: 20090109
  Serious: Yes (Hospitalization, Other)
  Sender: FDA-Public Use
  Company Number: DE-JNJFOC-20080800221

PATIENT
  Sex: Female
  Weight: 2.67 kg

DRUGS (6)
  1. TOPAMAX [Suspect]
     Indication: DRUG EXPOSURE DURING PREGNANCY
  2. MECAIN [Suspect]
     Indication: DRUG EXPOSURE DURING PREGNANCY
     Route: 015
  3. BUCAIN [Suspect]
     Indication: DRUG EXPOSURE DURING PREGNANCY
     Route: 015
  4. AKRINOR [Suspect]
     Indication: DRUG EXPOSURE DURING PREGNANCY
     Route: 015
  5. DROPERIDOL [Suspect]
     Indication: DRUG EXPOSURE DURING PREGNANCY
     Route: 015
  6. NOVALGIN [Suspect]
     Indication: DRUG EXPOSURE DURING PREGNANCY
     Route: 015

REACTIONS (4)
  - DRUG EXPOSURE DURING PREGNANCY [None]
  - HYPOGLYCAEMIA [None]
  - MUSCLE ATROPHY [None]
  - MUSCULAR DYSTROPHY [None]
